FAERS Safety Report 17901524 (Version 1)
Quarter: 2020Q2

REPORT INFORMATION
  Report Type: Spontaneous
  Country: DE (occurrence: DE)
  Receive Date: 20200616
  Receipt Date: 20200616
  Transmission Date: 20200714
  Serious: Yes (Other)
  Sender: FDA-Public Use
  Company Number: DE-PFIZER INC-2020230630

PATIENT
  Age: 38 Year
  Sex: Male

DRUGS (1)
  1. PREGABALIN. [Suspect]
     Active Substance: PREGABALIN
     Dosage: 600 MG, ONCE A DAY
     Route: 065

REACTIONS (4)
  - Multiple injuries [Unknown]
  - Bundle branch block left [Unknown]
  - Pain [Unknown]
  - Drug dependence [Unknown]
